FAERS Safety Report 7252314-8 (Version None)
Quarter: 2011Q1

REPORT INFORMATION
  Report Type: 
  Country: None (occurrence: None)
  Receive Date: 20110129
  Receipt Date: 20100104
  Transmission Date: 20110831
  Serious: No
  Sender: FDA-Public Use
  Company Number: PR-ABBOTT-10P-131-0617611-00

PATIENT
  Sex: Female
  Weight: 66.284 kg

DRUGS (3)
  1. GLUCOTROL XL [Concomitant]
     Indication: BLOOD GLUCOSE INCREASED
     Route: 048
  2. NAPROXEN [Concomitant]
     Indication: PAIN
     Route: 048
  3. HUMIRA [Suspect]
     Indication: RHEUMATOID ARTHRITIS
     Route: 058
     Dates: start: 20091001

REACTIONS (4)
  - PAIN IN EXTREMITY [None]
  - MUSCULOSKELETAL PAIN [None]
  - ARTHRALGIA [None]
  - DRUG INEFFECTIVE [None]
